FAERS Safety Report 4796335-3 (Version None)
Quarter: 2005Q4

REPORT INFORMATION
  Report Type: 
  Country: None (occurrence: None)
  Receive Date: 20051007
  Receipt Date: 20050928
  Transmission Date: 20060501
  Serious: Yes (Hospitalization)
  Sender: FDA-Public Use
  Company Number: 2005-09-1341

PATIENT
  Sex: Male

DRUGS (3)
  1. TEMODAR [Suspect]
     Indication: GLIOBLASTOMA MULTIFORME
     Dosage: 75MG/M^2 QD ORAL
     Route: 048
     Dates: start: 20050811
  2. RADIATION THERAPY [Concomitant]
  3. DECADRON [Concomitant]

REACTIONS (3)
  - DEHYDRATION [None]
  - MUCOSAL INFLAMMATION [None]
  - NEUTROPENIA [None]
